FAERS Safety Report 7301413-0 (Version None)
Quarter: 2011Q1

REPORT INFORMATION
  Report Type: 
  Country: None (occurrence: None)
  Receive Date: 20110218
  Receipt Date: 20110207
  Transmission Date: 20110831
  Serious: Yes (Life-Threatening, Other)
  Sender: FDA-Public Use
  Company Number: US-SANOFI-AVENTIS-2011SA006399

PATIENT
  Age: 57 Year
  Sex: Female

DRUGS (3)
  1. MULTAQ [Suspect]
     Route: 065
     Dates: start: 20110101, end: 20110101
  2. DIGOXIN [Concomitant]
  3. METOPROLOL [Concomitant]

REACTIONS (8)
  - ABDOMINAL DISTENSION [None]
  - NAUSEA [None]
  - ABDOMINAL DISCOMFORT [None]
  - HEPATOCELLULAR INJURY [None]
  - ABDOMINAL TENDERNESS [None]
  - DYSPNOEA [None]
  - TRANSAMINASES INCREASED [None]
  - MALAISE [None]
